FAERS Safety Report 9244611 (Version 2)
Quarter: 2013Q2

REPORT INFORMATION
  Report Type: Spontaneous
  Country: US (occurrence: US)
  Receive Date: 20130422
  Receipt Date: 20130529
  Transmission Date: 20140414
  Serious: Yes (Death, Hospitalization)
  Sender: FDA-Public Use
  Company Number: US-JNJFOC-20130410380

PATIENT
  Sex: Female

DRUGS (2)
  1. STELARA [Suspect]
     Indication: PSORIATIC ARTHROPATHY
     Route: 058
     Dates: start: 201106, end: 201203
  2. STELARA [Suspect]
     Indication: PSORIASIS
     Route: 058
     Dates: start: 201106, end: 201203

REACTIONS (1)
  - Death [Fatal]
